FAERS Safety Report 20247274 (Version 2)
Quarter: 2022Q1

REPORT INFORMATION
  Report Type: Spontaneous
  Country: GR (occurrence: GR)
  Receive Date: 20211229
  Receipt Date: 20220301
  Transmission Date: 20220423
  Serious: Yes (Other)
  Sender: FDA-Public Use
  Company Number: GR-VIANEX-20211218

PATIENT
  Age: 63 Year
  Sex: Female

DRUGS (4)
  1. METHOTREXATE [Suspect]
     Active Substance: METHOTREXATE
     Indication: Systemic scleroderma
     Dosage: UNK
  2. METHOTREXATE [Suspect]
     Active Substance: METHOTREXATE
     Indication: Raynaud^s phenomenon
  3. PREDNISOLONE [Suspect]
     Active Substance: PREDNISOLONE
     Indication: Raynaud^s phenomenon
     Dosage: UNK
  4. PREDNISOLONE [Suspect]
     Active Substance: PREDNISOLONE
     Indication: Systemic scleroderma

REACTIONS (3)
  - Ophthalmic herpes zoster [Recovered/Resolved]
  - Varicella zoster virus infection [Unknown]
  - Off label use [Unknown]
